FAERS Safety Report 10396596 (Version 1)
Quarter: 2014Q1

REPORT INFORMATION
  Report Type: Spontaneous
  Country: US (occurrence: None)
  Receive Date: 20130606
  Receipt Date: 20130606
  Transmission Date: 20141002
  Serious: No
  Sender: FDA-Public Use
  Company Number: 2013BAX004027

PATIENT
  Age: 44 Year
  Sex: Female
  Weight: 80.74 kg

DRUGS (2)
  1. GAMMAGARD [Suspect]
     Indication: IMMUNODEFICIENCY COMMON VARIABLE
     Dosage: 1.6643 GM (11.65 GM 1 IN 1 WK)
     Route: 058
     Dates: start: 20120501
  2. PROMETHAZINE [Concomitant]

REACTIONS (3)
  - Infusion site pain [None]
  - Infusion site extravasation [None]
  - Feeling abnormal [None]
